FAERS Safety Report 13040749 (Version 2)
Quarter: 2016Q4

REPORT INFORMATION
  Report Type: Spontaneous
  Country: FR (occurrence: FR)
  Receive Date: 20161219
  Receipt Date: 20161230
  Transmission Date: 20170207
  Serious: Yes (Hospitalization)
  Sender: FDA-Public Use
  Company Number: FR-PFIZER INC-2016576457

PATIENT
  Age: 8 Year
  Sex: Female
  Weight: 27.4 kg

DRUGS (5)
  1. DECAPEPTYL /00486501/ [Concomitant]
     Active Substance: GONADORELIN
     Indication: PRECOCIOUS PUBERTY
     Dosage: UNK UNK, MONTHLY
  2. GRANOCYTE [Concomitant]
     Active Substance: LENOGRASTIM
     Indication: APLASIA
     Dosage: 33.6 MILLION IU, 1X/DAY
     Dates: start: 20161108
  3. VINCRISTINE SULFATE. [Suspect]
     Active Substance: VINCRISTINE SULFATE
     Indication: UTERINE NEOPLASM
     Dosage: 2 MG, SINGLE
     Route: 042
     Dates: start: 20161124, end: 20161124
  4. DOXORUBICINE TEVA [Suspect]
     Active Substance: DOXORUBICIN
     Indication: UTERINE NEOPLASM
     Dosage: 37 MG, 1X/DAY
     Route: 042
     Dates: start: 20161124, end: 20161125
  5. ENDOXAN /00021101/ [Suspect]
     Active Substance: CYCLOPHOSPHAMIDE
     Indication: UTERINE NEOPLASM
     Dosage: 1190 MG, SINGLE
     Route: 042
     Dates: start: 20161124, end: 20161124

REACTIONS (1)
  - Venoocclusive disease [Recovered/Resolved]

NARRATIVE: CASE EVENT DATE: 20161203
